FAERS Safety Report 10539126 (Version 2)
Quarter: 2015Q1

REPORT INFORMATION
  Report Type: Report from Study
  Country: US (occurrence: US)
  Receive Date: 20141023
  Receipt Date: 20150114
  Transmission Date: 20150720
  Serious: Yes (Hospitalization, Other)
  Sender: FDA-Public Use
  Company Number: US-TAKEDA-2014MPI002773

PATIENT
  Age: 56 Year
  Sex: Male

DRUGS (4)
  1. DEXAMETHASONE. [Suspect]
     Active Substance: DEXAMETHASONE
     Dosage: 20 MG, CYCLE 2
     Route: 048
  2. VELCADE [Suspect]
     Active Substance: BORTEZOMIB
     Dosage: 1.3 MG/M2, CYCLE 2
     Route: 058
  3. VELCADE [Suspect]
     Active Substance: BORTEZOMIB
     Indication: AMYLOIDOSIS
     Dosage: 1.3 MG/M2, CYCLE 1
     Route: 042
     Dates: start: 20140609
  4. DEXAMETHASONE. [Suspect]
     Active Substance: DEXAMETHASONE
     Indication: AMYLOIDOSIS
     Dosage: 40 MG, CYCLE 1
     Route: 048
     Dates: start: 20140609

REACTIONS (2)
  - Acute kidney injury [Recovered/Resolved with Sequelae]
  - Engraftment syndrome [Recovered/Resolved]

NARRATIVE: CASE EVENT DATE: 20140919
